FAERS Safety Report 8011079-2 (Version None)
Quarter: 2011Q4

REPORT INFORMATION
  Report Type: 
  Country: None (occurrence: None)
  Receive Date: 20111228
  Receipt Date: 20111219
  Transmission Date: 20120403
  Serious: Yes (Other)
  Sender: FDA-Public Use
  Company Number: NL-B.I. PHARMACEUTICALS,INC./RIDGEFIELD-2011-EU-01196GD

PATIENT
  Age: 1 Year
  Sex: Male

DRUGS (8)
  1. ALBUTEROL SULFATE AUTOHALER [Concomitant]
     Route: 042
  2. IPRATROPIUM BROMIDE [Suspect]
     Indication: ASTHMA
     Dosage: 3 DOSES
     Route: 055
  3. FENTANYL [Concomitant]
     Indication: THERAPEUTIC PROCEDURE
  4. ALBUTEROL SULFATE AUTOHALER [Concomitant]
     Indication: ASTHMA
     Route: 055
  5. PROPOFOL [Concomitant]
     Indication: THERAPEUTIC PROCEDURE
  6. MIDAZOLAM [Concomitant]
     Indication: THERAPEUTIC PROCEDURE
  7. ROCURONIUM BROMIDE [Concomitant]
     Indication: THERAPEUTIC PROCEDURE
  8. IV STEROIDS [Concomitant]
     Indication: ASTHMA
     Route: 042

REACTIONS (4)
  - PUPILS UNEQUAL [None]
  - DRUG ADMINISTERED AT INAPPROPRIATE SITE [None]
  - PUPIL FIXED [None]
  - MYDRIASIS [None]
